FAERS Safety Report 6159212-1 (Version None)
Quarter: 2009Q2

REPORT INFORMATION
  Report Type: 
  Country: None (occurrence: None)
  Receive Date: 20090414
  Receipt Date: 20081215
  Transmission Date: 20091009
  Serious: Yes (Hospitalization, Other)
  Sender: FDA-Public Use
  Company Number: NALB20080002

PATIENT
  Age: 3 Year
  Sex: Female

DRUGS (11)
  1. NALBUPHINE HCL [Suspect]
     Indication: VIRAL INFECTION
  2. AMOXICILLIN [Suspect]
     Indication: VIRAL INFECTION
  3. ACETAMINOPHEN [Suspect]
     Indication: VIRAL INFECTION
  4. AMIKACIN [Suspect]
     Indication: VIRAL INFECTION
  5. ROCEPHIN [Suspect]
     Indication: VIRAL INFECTION
  6. CEFTAZIDIME [Suspect]
     Indication: VIRAL INFECTION
  7. FUCIDINE CAP [Suspect]
     Indication: VIRAL INFECTION
  8. HEXOMEDINE (HEXAMIDINE DI-ISETIONATE) [Suspect]
     Indication: VIRAL INFECTION
  9. OFLOXACIN [Suspect]
     Indication: VIRAL INFECTION
  10. VANCOMYCIN [Suspect]
     Indication: VIRAL INFECTION
  11. ATARAX [Suspect]
     Indication: VIRAL INFECTION

REACTIONS (1)
  - TOXIC EPIDERMAL NECROLYSIS [None]
